FAERS Safety Report 23564163 (Version 2)
Quarter: 2024Q2

REPORT INFORMATION
  Report Type: Report from Study
  Country: JP (occurrence: JP)
  Receive Date: 20240226
  Receipt Date: 20240422
  Transmission Date: 20240715
  Serious: Yes (Life-Threatening)
  Sender: FDA-Public Use
  Company Number: JP-ORPHANEU-2024001229

PATIENT

DRUGS (19)
  1. ISTURISA [Suspect]
     Active Substance: OSILODROSTAT PHOSPHATE
     Indication: Cushing^s syndrome
     Dosage: 1 MG, QD
     Route: 065
     Dates: start: 20221021, end: 20221023
  2. ISTURISA [Suspect]
     Active Substance: OSILODROSTAT PHOSPHATE
     Dosage: 2 MG BID
     Route: 065
     Dates: start: 20221024, end: 20221024
  3. ISTURISA [Suspect]
     Active Substance: OSILODROSTAT PHOSPHATE
     Dosage: 4 MG, QD
     Route: 065
     Dates: start: 20221025, end: 20221027
  4. ISTURISA [Suspect]
     Active Substance: OSILODROSTAT PHOSPHATE
     Dosage: 8 MG BID
     Route: 065
     Dates: start: 20221028, end: 20221030
  5. ISTURISA [Suspect]
     Active Substance: OSILODROSTAT PHOSPHATE
     Dosage: 10 MG, BID (4MG, 6MG)
     Route: 065
     Dates: start: 20221031, end: 20221031
  6. ISTURISA [Suspect]
     Active Substance: OSILODROSTAT PHOSPHATE
     Dosage: 12 MG, BID
     Route: 065
     Dates: start: 20221101, end: 20221104
  7. ISTURISA [Suspect]
     Active Substance: OSILODROSTAT PHOSPHATE
     Dosage: 20 MG, BID
     Route: 065
     Dates: start: 20221105, end: 20221114
  8. ISTURISA [Suspect]
     Active Substance: OSILODROSTAT PHOSPHATE
     Dosage: 10 MG, BID
     Route: 065
     Dates: start: 20221115, end: 20221116
  9. ISTURISA [Suspect]
     Active Substance: OSILODROSTAT PHOSPHATE
     Dosage: 4 MG, BID
     Route: 065
     Dates: start: 20221117, end: 20221123
  10. ISTURISA [Suspect]
     Active Substance: OSILODROSTAT PHOSPHATE
     Dosage: 2 MG, BID
     Route: 065
     Dates: start: 20221124, end: 20221126
  11. ISTURISA [Suspect]
     Active Substance: OSILODROSTAT PHOSPHATE
     Dosage: 1 MG, QD
     Route: 065
     Dates: start: 20221127, end: 20230202
  12. SPIRONOLACTONE [Concomitant]
     Active Substance: SPIRONOLACTONE
     Indication: Disease complication
     Dosage: 100MG DAILY
     Route: 048
     Dates: start: 20221003, end: 20230110
  13. ETOPOSIDE [Concomitant]
     Active Substance: ETOPOSIDE
     Indication: Disease complication
     Dosage: 135 MG DAILY INJECTION
     Dates: start: 20221031, end: 20221102
  14. CARBOCYSTEINE [Concomitant]
     Active Substance: CARBOCYSTEINE
     Indication: Disease complication
     Dosage: 535 MG DAILY INJECTION
     Dates: start: 20221031, end: 20221031
  15. SITAGLIPTIN [Concomitant]
     Active Substance: SITAGLIPTIN
     Indication: Disease complication
     Dosage: 50 MG DAILY
     Route: 048
     Dates: start: 20221018, end: 20221227
  16. REPAGLINIDE [Concomitant]
     Active Substance: REPAGLINIDE
     Indication: Disease complication
     Dosage: 0.25 MG DAILY
     Route: 048
     Dates: start: 20221110, end: 20221227
  17. DURVALUMAB [Concomitant]
     Active Substance: DURVALUMAB
     Indication: Disease complication
     Dosage: 1500 MG DAILY INJECTION
     Dates: start: 20221031, end: 20221031
  18. DEXAMETHASONE [Concomitant]
     Active Substance: DEXAMETHASONE
     Indication: Prophylaxis
     Dosage: 1.65 MG DAILY INJECTION
     Dates: start: 20230124, end: 20230218
  19. CORTRIL [Concomitant]
     Active Substance: HYDROCORTISONE
     Indication: Prophylaxis
     Dosage: 15 MG., DAILY
     Route: 048
     Dates: start: 20221010, end: 20230202

REACTIONS (3)
  - Pancreatic leak [Not Recovered/Not Resolved]
  - Inflammation [Not Recovered/Not Resolved]
  - Off label use [Recovered/Resolved]

NARRATIVE: CASE EVENT DATE: 20221021
